FAERS Safety Report 19805381 (Version 3)
Quarter: 2022Q1

REPORT INFORMATION
  Report Type: Report from Study
  Country: DE (occurrence: DE)
  Receive Date: 20210908
  Receipt Date: 20220330
  Transmission Date: 20220423
  Serious: Yes (Other)
  Sender: FDA-Public Use
  Company Number: DE-002147023-NVSC2019DE031081

PATIENT
  Sex: Female
  Weight: 72 kg

DRUGS (20)
  1. LETROZOLE [Suspect]
     Active Substance: LETROZOLE
     Indication: Breast cancer metastatic
     Dosage: 2.5 MILLIGRAM, QD (2.5 MG, QD(DAILY)
     Route: 048
     Dates: start: 20191010
  2. KISQALI [Suspect]
     Active Substance: RIBOCICLIB
     Indication: Breast cancer metastatic
     Dosage: 600 MILLIGRAM, QD (SCHEME 21 DAYS INTAKE, THAN 7 DAYS PAUSE)
     Route: 048
     Dates: start: 20191010, end: 20191106
  3. KISQALI [Suspect]
     Active Substance: RIBOCICLIB
     Dosage: 600 MILLIGRAM, QD (SCHEMA 21 DAYS INTAKE INTAKE, THAN 7 DAYS PAUSE)
     Route: 048
     Dates: start: 20191112, end: 20200101
  4. KISQALI [Suspect]
     Active Substance: RIBOCICLIB
     Dosage: 600 MILLIGRAM, QD  (SCHEMA 21 DAYS INTAKE INTAKE, THAN 7 DAYS PAUSE)
     Route: 048
     Dates: start: 20200116, end: 20200205
  5. KISQALI [Suspect]
     Active Substance: RIBOCICLIB
     Dosage: 600 MILLIGRAM, QD (SCHEMA 21 DAYS INTAKE INTAKE, THAN 7 DAYS PAUSE)
     Route: 048
     Dates: start: 20200220, end: 20200408
  6. KISQALI [Suspect]
     Active Substance: RIBOCICLIB
     Dosage: 600 MILLIGRAM, QD (SCHEMA 21 DAYS INTAKE INTAKE, THAN 7 DAYS PAUSE)
     Route: 048
     Dates: start: 20200701, end: 20200728
  7. KISQALI [Suspect]
     Active Substance: RIBOCICLIB
     Dosage: 600 MILLIGRAM, QD (SCHEMA 21 DAYS INTAKE INTAKE, THAN 7 DAYS PAUSE)
     Route: 048
     Dates: start: 20200805, end: 20200929
  8. KISQALI [Suspect]
     Active Substance: RIBOCICLIB
     Dosage: 600 MILLIGRAM, QD  (SCHEMA 21 DAYS INTAKE INTAKE, THAN 7 DAYS PAUSE)
     Route: 048
     Dates: start: 20200421, end: 20200511
  9. KISQALI [Suspect]
     Active Substance: RIBOCICLIB
     Dosage: 600 MILLIGRAM, QD (SCHEMA 21 DAYS INTAKE INTAKE, THAN 7 DAYS PAUSE)
     Route: 048
     Dates: start: 20200527, end: 20200623
  10. KISQALI [Suspect]
     Active Substance: RIBOCICLIB
     Dosage: 600 MILLIGRAM, QD (SCHEMA 21 DAYS INTAKE INTAKE, THAN 7 DAYS PAUSE)
     Route: 048
     Dates: start: 20201012, end: 20201129
  11. KISQALI [Suspect]
     Active Substance: RIBOCICLIB
     Dosage: 600 MILLIGRAM, QD  (SCHEMA 21 DAYS INTAKE INTAKE, THAN 7 DAYS PAUSE)
     Route: 048
     Dates: start: 20201217, end: 20210113
  12. KISQALI [Suspect]
     Active Substance: RIBOCICLIB
     Dosage: 600 MILLIGRAM, QD (SCHEMA 21 DAYS INTAKE INTAKE, THAN 7 DAYS PAUSE)
     Route: 048
     Dates: start: 20210121, end: 20210217
  13. KISQALI [Suspect]
     Active Substance: RIBOCICLIB
     Dosage: 600 MILLIGRAM, QD (SCHEMA 21 DAYS INTAKE INTAKE, THAN 7 DAYS PAUSE)
     Route: 048
     Dates: start: 20210329, end: 20210418
  14. KISQALI [Suspect]
     Active Substance: RIBOCICLIB
     Dosage: 600 MILLIGRAM, QD ((SCHEMA 21 DAYS INTAKE INTAKE, THAN 7 DAYS PAUSE)
     Route: 048
     Dates: start: 20210913, end: 20211010
  15. KISQALI [Suspect]
     Active Substance: RIBOCICLIB
     Dosage: 600 MILLIGRAM, QD (SCHEMA 21 DAYS INTAKE INTAKE, THAN 7 DAYS PAUSE)
     Route: 048
     Dates: start: 20211017, end: 20211113
  16. KISQALI [Suspect]
     Active Substance: RIBOCICLIB
     Dosage: 600 MILLIGRAM, QD (SCHEMA 21 DAYS INTAKE INTAKE, THAN 7 DAYS PAUSE)
     Route: 048
     Dates: start: 20210503, end: 20210620
  17. KISQALI [Suspect]
     Active Substance: RIBOCICLIB
     Dosage: 600 MILLIGRAM, QD (SCHEMA 21 DAYS INTAKE INTAKE, THAN 7 DAYS PAUSE)
     Route: 048
     Dates: start: 20210226, end: 20210311
  18. KISQALI [Suspect]
     Active Substance: RIBOCICLIB
     Dosage: 600 MILLIGRAM, QD (SCHEMA 21 DAYS INTAKE INTAKE, THAN 7 DAYS PAUSE)
     Route: 048
     Dates: start: 20210709, end: 20210827
  19. KISQALI [Suspect]
     Active Substance: RIBOCICLIB
     Dosage: 600 MILLIGRAM, QD (SCHEMA 21 DAYS INTAKE INTAKE, THAN 7 DAYS PAUSE)
     Route: 048
     Dates: start: 20211017, end: 20211113
  20. KISQALI [Suspect]
     Active Substance: RIBOCICLIB
     Dosage: 600 MILLIGRAM, QD ((SCHEMA 21 DAYS INTAKE INTAKE, THAN 7 DAYS PAUSE)
     Route: 048
     Dates: start: 20211114

REACTIONS (4)
  - Neutropenia [Recovered/Resolved]
  - Visual impairment [Recovered/Resolved]
  - Dry eye [Recovered/Resolved]
  - Dyspepsia [Recovering/Resolving]

NARRATIVE: CASE EVENT DATE: 20191025
